FAERS Safety Report 9134908 (Version 1)
Quarter: 2013Q1

REPORT INFORMATION
  Report Type: Spontaneous
  Country: SE (occurrence: SE)
  Receive Date: 20130304
  Receipt Date: 20130304
  Transmission Date: 20140127
  Serious: Yes (Hospitalization)
  Sender: FDA-Public Use
  Company Number: SE-GALDERMA-SE13000687

PATIENT
  Age: 29 Year
  Sex: Female

DRUGS (2)
  1. BASIRON AC [Suspect]
     Dosage: 5%
     Route: 061
     Dates: start: 20130211, end: 20130212
  2. CERAZETTE [Concomitant]

REACTIONS (4)
  - Dyspnoea [Recovered/Resolved with Sequelae]
  - Feeling hot [Recovered/Resolved with Sequelae]
  - Eczema [Recovered/Resolved with Sequelae]
  - Rash pruritic [Recovered/Resolved with Sequelae]
